FAERS Safety Report 6795774-9 (Version None)
Quarter: 2010Q2

REPORT INFORMATION
  Report Type: 
  Country: None (occurrence: None)
  Receive Date: 20100625
  Receipt Date: 20100616
  Transmission Date: 20101027
  Serious: Yes (Hospitalization)
  Sender: FDA-Public Use
  Company Number: US-ABBOTT-10P-163-0652607-00

PATIENT
  Sex: Female

DRUGS (9)
  1. HUMIRA [Suspect]
     Indication: CROHN'S DISEASE
     Dates: start: 20080101, end: 20100516
  2. GEODON [Concomitant]
     Indication: ANXIETY
  3. GEODON [Concomitant]
     Indication: DEPRESSION
  4. FLUOXETINE HCL [Concomitant]
     Indication: ANXIETY
  5. FLUOXETINE HCL [Concomitant]
     Indication: DEPRESSION
  6. FERROUS GLUCONATE [Concomitant]
     Indication: BLOOD IRON DECREASED
  7. FERROUS GLUCONATE [Concomitant]
     Indication: ANAEMIA
  8. BENADRYL [Concomitant]
     Indication: HYPERSENSITIVITY
  9. CLARITIN [Concomitant]
     Indication: HYPERSENSITIVITY

REACTIONS (9)
  - ABDOMINAL PAIN UPPER [None]
  - ANAEMIA [None]
  - BLOOD IRON DECREASED [None]
  - DIARRHOEA HAEMORRHAGIC [None]
  - HAEMATEMESIS [None]
  - HEADACHE [None]
  - LOSS OF CONSCIOUSNESS [None]
  - NAUSEA [None]
  - VISUAL IMPAIRMENT [None]
